FAERS Safety Report 9302159 (Version 3)
Quarter: 2013Q2

REPORT INFORMATION
  Report Type: Spontaneous
  Country: US (occurrence: US)
  Receive Date: 20130522
  Receipt Date: 20130610
  Transmission Date: 20140414
  Serious: Yes (Hospitalization)
  Sender: FDA-Public Use
  Company Number: US-B.I. PHARMACEUTICALS,INC./RIDGEFIELD-2013-BI-13474BP

PATIENT
  Age: 86 Year
  Sex: Female
  Weight: 54 kg

DRUGS (5)
  1. PRADAXA [Suspect]
     Indication: ATRIAL FIBRILLATION
     Dosage: 300 MG
     Route: 048
  2. TRIAM - HCTZ [Concomitant]
     Indication: ATRIAL FIBRILLATION
     Dosage: STRENGTH: 37.5 MG / 25 MG; DAILY DOSE: 37.5 MG / 25 MG
     Route: 048
     Dates: start: 2006
  3. ASPIRIN [Concomitant]
     Indication: ATRIAL FIBRILLATION
     Dosage: 81 MG
     Route: 048
     Dates: start: 2006
  4. METOPROLOL [Concomitant]
     Indication: HEART RATE
     Dosage: 50 MG
     Route: 048
     Dates: start: 2006
  5. TYLENOL [Concomitant]

REACTIONS (8)
  - Tracheobronchitis [Recovered/Resolved]
  - Gastric haemorrhage [Recovered/Resolved]
  - Upper gastrointestinal haemorrhage [Recovered/Resolved]
  - Alopecia [Not Recovered/Not Resolved]
  - Contusion [Not Recovered/Not Resolved]
  - Contusion [Not Recovered/Not Resolved]
  - Gastritis erosive [Unknown]
  - Candida infection [Unknown]
